FAERS Safety Report 6333365-4 (Version None)
Quarter: 2009Q3

REPORT INFORMATION
  Report Type: 
  Country: None (occurrence: None)
  Receive Date: 20090828
  Receipt Date: 20090820
  Transmission Date: 20100115
  Serious: Yes (Hospitalization)
  Sender: FDA-Public Use
  Company Number: GB-ROCHE-652353

PATIENT
  Age: 12 Year
  Sex: Female

DRUGS (5)
  1. TAMIFLU [Suspect]
     Indication: DRUG USE FOR UNKNOWN INDICATION
     Dosage: ACTION TAKEN WITH DRUG UNKNOWN.
     Route: 065
     Dates: start: 20090728, end: 20090729
  2. HYDROCORTISONE [Concomitant]
  3. LEVOTHYROXINE SODIUM [Concomitant]
  4. DESMOPRESSIN ACETATE [Concomitant]
  5. SAIZEN [Concomitant]

REACTIONS (1)
  - SOMNOLENCE [None]
